FAERS Safety Report 7068658-9 (Version None)
Quarter: 2010Q4

REPORT INFORMATION
  Report Type: 
  Country: None (occurrence: None)
  Receive Date: 20101027
  Receipt Date: 20101027
  Transmission Date: 20110411
  Serious: No
  Sender: FDA-Public Use
  Company Number: None

PATIENT
  Age: 11 Year
  Sex: Female
  Weight: 38.5557 kg

DRUGS (1)
  1. OMNICEF [Suspect]
     Indication: MASTOIDITIS
     Dosage: 300 MG TWICE DAILY PO
     Route: 048
     Dates: start: 20100910, end: 20100920

REACTIONS (3)
  - ABDOMINAL DISCOMFORT [None]
  - NAUSEA [None]
  - VOMITING [None]
